FAERS Safety Report 23289036 (Version 1)
Quarter: 2023Q4

REPORT INFORMATION
  Report Type: Spontaneous
  Country: DE (occurrence: DE)
  Receive Date: 20231212
  Receipt Date: 20231212
  Transmission Date: 20240109
  Serious: Yes (Other)
  Sender: FDA-Public Use
  Company Number: DE-SUN PHARMACEUTICAL INDUSTRIES LTD-2023R1-423312

PATIENT
  Age: 46 Year
  Sex: Female

DRUGS (4)
  1. METHOTREXATE [Suspect]
     Active Substance: METHOTREXATE
     Indication: Neoplasm
     Dosage: UNK
     Route: 042
     Dates: start: 201710, end: 201806
  2. ETOPOSIDE [Suspect]
     Active Substance: ETOPOSIDE
     Indication: Neoplasm
     Dosage: 100 MILLIGRAM/SQ. METER
     Route: 042
     Dates: start: 201710, end: 201806
  3. ACTINOMYCIN D [Suspect]
     Active Substance: DACTINOMYCIN
     Indication: Neoplasm
     Dosage: 0.5 MILLIGRAM
     Route: 042
     Dates: start: 201710, end: 201806
  4. CISPLATIN [Suspect]
     Active Substance: CISPLATIN
     Indication: Neoplasm
     Dosage: 50 MILLIGRAM/SQ. METER
     Route: 042
     Dates: start: 201710, end: 201806

REACTIONS (2)
  - Disease progression [Unknown]
  - Metastasis [Recovering/Resolving]
